FAERS Safety Report 14175743 (Version 6)
Quarter: 2018Q1

REPORT INFORMATION
  Report Type: Report from Study
  Country: FR (occurrence: FR)
  Receive Date: 20171109
  Receipt Date: 20180202
  Transmission Date: 20180508
  Serious: Yes (Life-Threatening, Hospitalization)
  Sender: FDA-Public Use
  Company Number: PHHY2017FR164648

PATIENT
  Age: 52 Year
  Sex: Female

DRUGS (7)
  1. AMLOR [Concomitant]
     Active Substance: AMLODIPINE BESYLATE
     Indication: HYPERTENSION
     Dosage: 10 MG, QD
     Route: 065
  2. ESIDREX [Concomitant]
     Active Substance: HYDROCHLOROTHIAZIDE
     Indication: HYPERTENSION
     Dosage: 12.5 MG, QD
     Route: 065
  3. ARACYTINE [Concomitant]
     Active Substance: CYTARABINE
     Indication: ACUTE MYELOID LEUKAEMIA
     Dosage: 200 MG/M2, UNK
     Route: 065
     Dates: start: 20170930, end: 20171006
  4. TRIATEC [Concomitant]
     Active Substance: RAMIPRIL
     Indication: HYPERTENSION
     Dosage: 2.5 MG, QD
     Route: 065
  5. PKC412 [Suspect]
     Active Substance: MIDOSTAURIN
     Indication: ACUTE MYELOID LEUKAEMIA
     Dosage: 100 MG, QD
     Route: 048
     Dates: start: 20171014, end: 20171029
  6. DAUNORUBICINE [Concomitant]
     Active Substance: DAUNORUBICIN
     Indication: ACUTE MYELOID LEUKAEMIA
     Dosage: 90 MG/M2, UNK
     Route: 065
     Dates: start: 20170930, end: 20171003
  7. OROZAMUDOL [Concomitant]
     Active Substance: TRAMADOL
     Indication: GAIT DISTURBANCE
     Dosage: 4 DF, QD (50 MG)
     Route: 065

REACTIONS (7)
  - Hyperglycaemia [Recovering/Resolving]
  - Hypernatraemia [Recovering/Resolving]
  - Abdominal pain [Unknown]
  - Hyperlipasaemia [Unknown]
  - Pancreatitis [Recovering/Resolving]
  - Hyperosmolar state [Recovering/Resolving]
  - Ketoacidosis [Recovering/Resolving]

NARRATIVE: CASE EVENT DATE: 20171101
